FAERS Safety Report 9276188 (Version 2)
Quarter: 2013Q1

REPORT INFORMATION
  Report Type: Spontaneous
  Country: US (occurrence: None)
  Receive Date: 20121012
  Receipt Date: 20121024
  Transmission Date: 20140127
  Serious: No
  Sender: FDA-Public Use
  Company Number: DKLU1085041

PATIENT
  Age: 18 Year
  Sex: Male

DRUGS (1)
  1. SABRIL ?(TABLET)(SABRIL)(VIGABATRIN)(500 MG, TABLET) [Suspect]
     Indication: COMPLEX PARTIAL SEIZURES
     Route: 048
     Dates: start: 20111227

REACTIONS (1)
  - Drug ineffective [None]
